FAERS Safety Report 20126779 (Version 2)
Quarter: 2022Q1

REPORT INFORMATION
  Report Type: Spontaneous
  Country: US (occurrence: US)
  Receive Date: 20211129
  Receipt Date: 20220107
  Transmission Date: 20220423
  Serious: No
  Sender: FDA-Public Use
  Company Number: US-BAYER-2021A255554

PATIENT
  Age: 60 Year
  Sex: Female

DRUGS (2)
  1. ESTRADIOL HEMIHYDRATE [Suspect]
     Active Substance: ESTRADIOL HEMIHYDRATE
     Dosage: UNK UNK, OW
     Route: 062
     Dates: start: 2019
  2. LEVOTHYROXINE [Concomitant]
     Active Substance: LEVOTHYROXINE
     Dosage: 120 ?G, QD

REACTIONS (4)
  - Application site rash [Not Recovered/Not Resolved]
  - Device adhesion issue [None]
  - Device physical property issue [None]
  - Multiple use of single-use product [None]

NARRATIVE: CASE EVENT DATE: 20190101
